FAERS Safety Report 5702120-8 (Version None)
Quarter: 2008Q2

REPORT INFORMATION
  Report Type: 
  Country: None (occurrence: None)
  Receive Date: 20080408
  Receipt Date: 20080324
  Transmission Date: 20081010
  Serious: Yes (Life-Threatening, Hospitalization)
  Sender: FDA-Public Use
  Company Number: 2007EU000803

PATIENT
  Age: 66 Year
  Sex: Female
  Weight: 53 kg

DRUGS (5)
  1. PROGRAF [Suspect]
     Indication: RENAL TRANSPLANT
     Dosage: 1 MG, /D, ORAL
     Route: 048
     Dates: start: 20050101
  2. ATORVASTATIN CALCIUM [Suspect]
     Indication: HYPERCHOLESTEROLAEMIA
     Dosage: 20 MG, /D, ORAL
     Route: 048
     Dates: start: 20050101, end: 20070201
  3. DECORTIN (PREDNISONE) [Concomitant]
  4. CELLCEPT [Concomitant]
  5. BISOPROLOL (BISOPROLOL) [Concomitant]

REACTIONS (5)
  - DRUG INTERACTION [None]
  - HEPATIC ENZYME INCREASED [None]
  - MUSCULAR WEAKNESS [None]
  - MYALGIA [None]
  - RHABDOMYOLYSIS [None]
